FAERS Safety Report 16446672 (Version 2)
Quarter: 2019Q3

REPORT INFORMATION
  Report Type: Report from Study
  Country: CA (occurrence: CA)
  Receive Date: 20190618
  Receipt Date: 20190710
  Transmission Date: 20191004
  Serious: Yes (Other)
  Sender: FDA-Public Use
  Company Number: PHHY2019CA137387

PATIENT
  Age: 71 Year
  Sex: Male

DRUGS (1)
  1. SANDOSTATIN LAR DEPOT [Suspect]
     Active Substance: OCTREOTIDE ACETATE
     Indication: NEUROENDOCRINE TUMOUR
     Dosage: 20 MG, QMO
     Route: 030
     Dates: start: 20190513

REACTIONS (5)
  - Diarrhoea [Unknown]
  - Lung infection [Unknown]
  - Gastrointestinal motility disorder [Unknown]
  - Abdominal distension [Unknown]
  - Faeces soft [Unknown]

NARRATIVE: CASE EVENT DATE: 20190606
